FAERS Safety Report 20962988 (Version 2)
Quarter: 2022Q2

REPORT INFORMATION
  Report Type: Spontaneous
  Country: US (occurrence: US)
  Receive Date: 20220615
  Receipt Date: 20220621
  Transmission Date: 20220721
  Serious: Yes (Other)
  Sender: FDA-Public Use
  Company Number: US-MYOVANT SCIENCES GMBH-2022MYSCI0500367

PATIENT
  Sex: Female

DRUGS (1)
  1. MYFEMBREE [Suspect]
     Active Substance: ESTRADIOL HEMIHYDRATE\NORETHINDRONE ACETATE\RELUGOLIX
     Indication: Menstruation irregular
     Dosage: 1 TAB, QD
     Route: 048

REACTIONS (4)
  - Myomectomy [Unknown]
  - Oligomenorrhoea [Unknown]
  - Endometriosis [Unknown]
  - Therapy interrupted [Unknown]
